FAERS Safety Report 6878160-2 (Version None)
Quarter: 2010Q2

REPORT INFORMATION
  Report Type: 
  Country: None (occurrence: None)
  Receive Date: 20100623
  Receipt Date: 20080623
  Transmission Date: 20101027
  Serious: No
  Sender: FDA-Public Use
  Company Number: 2008-00095

PATIENT
  Sex: Female
  Weight: 52.1637 kg

DRUGS (1)
  1. ZICAM COLD REMEDY NASAL GEL [Suspect]
     Indication: NASOPHARYNGITIS
     Dosage: QD X 2 DAYS
     Dates: start: 20080618, end: 20080620

REACTIONS (2)
  - AGEUSIA [None]
  - ANOSMIA [None]
